FAERS Safety Report 5145016-5 (Version None)
Quarter: 2006Q4

REPORT INFORMATION
  Report Type: 
  Country: None (occurrence: None)
  Receive Date: 20061107
  Receipt Date: 20060303
  Transmission Date: 20070319
  Serious: Yes (Congenital Anomaly)
  Sender: FDA-Public Use
  Company Number: US-GLAXOSMITHKLINE-A0596350B

PATIENT

DRUGS (1)
  1. LAMOTRIGINE [Suspect]
     Indication: EPILEPSY
     Dates: start: 20050318, end: 20060110

REACTIONS (2)
  - DRUG EXPOSURE DURING PREGNANCY [None]
  - NO ADVERSE EFFECT [None]
